FAERS Safety Report 5873717-X (Version None)
Quarter: 2008Q3

REPORT INFORMATION
  Report Type: 
  Country: None (occurrence: None)
  Receive Date: 20080829
  Receipt Date: 20080821
  Transmission Date: 20090109
  Serious: Yes (Hospitalization)
  Sender: FDA-Public Use
  Company Number: VISP-NO-0703L-0106

PATIENT
  Age: 52 Year
  Sex: Male

DRUGS (5)
  1. VISIPAQUE [Suspect]
     Indication: ACUTE MYOCARDIAL INFARCTION
     Dosage: 170 ML, MIN/ MINS
  2. LOW MOLECULAR WEIGHT HEPARIN [Concomitant]
  3. ASPIRIN [Concomitant]
  4. CLOPIDOGREL [Concomitant]
  5. CILOSTAZOL [Concomitant]

REACTIONS (1)
  - DERMATITIS EXFOLIATIVE [None]
